FAERS Safety Report 15109028 (Version 3)
Quarter: 2018Q3

REPORT INFORMATION
  Report Type: Spontaneous
  Country: AU (occurrence: AU)
  Receive Date: 20180705
  Receipt Date: 20180816
  Transmission Date: 20181010
  Serious: Yes (Hospitalization, Other)
  Sender: FDA-Public Use
  Company Number: AU-ROCHE-2148557

PATIENT
  Age: 70 Year
  Sex: Male

DRUGS (12)
  1. MEGAFOL [Concomitant]
     Active Substance: FOLIC ACID
     Indication: RHEUMATOID ARTHRITIS
     Dosage: EXCEPT FOR THE DAY OF MTX
     Route: 065
  2. PLAQUENIL [Concomitant]
     Active Substance: HYDROXYCHLOROQUINE SULFATE
     Route: 065
  3. ALLOPURINOL. [Concomitant]
     Active Substance: ALLOPURINOL
     Route: 065
  4. RITUXIMAB. [Suspect]
     Active Substance: RITUXIMAB
     Dosage: 3 MONTHS AGO
     Route: 042
     Dates: start: 2009
  5. WARFARIN SODIUM. [Concomitant]
     Active Substance: WARFARIN SODIUM
     Route: 065
  6. ZOTON [Concomitant]
     Active Substance: LANSOPRAZOLE
     Route: 065
  7. PLAQUENIL [Concomitant]
     Active Substance: HYDROXYCHLOROQUINE SULFATE
     Indication: RHEUMATOID ARTHRITIS
     Route: 065
     Dates: start: 20150818
  8. ZANIDIP [Concomitant]
     Active Substance: LERCANIDIPINE HYDROCHLORIDE
     Route: 065
  9. INTRAGAM P [Concomitant]
     Active Substance: HUMAN IMMUNOGLOBULIN G
     Route: 065
  10. METHOTREXATE. [Concomitant]
     Active Substance: METHOTREXATE
     Indication: RHEUMATOID ARTHRITIS
     Dosage: 10 MG TABLET
     Route: 065
     Dates: start: 20080901
  11. RITUXIMAB. [Suspect]
     Active Substance: RITUXIMAB
     Indication: RHEUMATOID ARTHRITIS
     Dosage: STRENGTH: 500 MG/ 50ML
     Route: 042
     Dates: start: 20180216, end: 20180626
  12. PREDNISOLONE. [Concomitant]
     Active Substance: PREDNISOLONE
     Indication: RHEUMATOID ARTHRITIS
     Route: 065

REACTIONS (19)
  - Neuropathy peripheral [Recovering/Resolving]
  - Synovial disorder [Not Recovered/Not Resolved]
  - Synovitis [Unknown]
  - Foot fracture [Unknown]
  - Osteoarthritis [Unknown]
  - Bronchiectasis [Not Recovered/Not Resolved]
  - Red blood cell sedimentation rate increased [Recovering/Resolving]
  - Fall [Unknown]
  - Vasculitis [Unknown]
  - Hypogammaglobulinaemia [Not Recovered/Not Resolved]
  - Hypoaesthesia [Recovering/Resolving]
  - Drug ineffective [Unknown]
  - Sciatica [Unknown]
  - Joint effusion [Unknown]
  - C-reactive protein increased [Unknown]
  - Pneumonia [Recovered/Resolved]
  - Lower respiratory tract infection [Unknown]
  - Soft tissue swelling [Unknown]
  - Neuropathy peripheral [Unknown]

NARRATIVE: CASE EVENT DATE: 201702
